FAERS Safety Report 25066870 (Version 3)
Quarter: 2025Q4

REPORT INFORMATION
  Report Type: Spontaneous
  Country: EU (occurrence: EU)
  Receive Date: 20250312
  Receipt Date: 20251218
  Transmission Date: 20260118
  Serious: Yes (Hospitalization, Other)
  Sender: SANDOZ
  Company Number: EU-SAMSUNG BIOEPIS-SB-2023-28438

PATIENT
  Age: 63 Year
  Sex: Male
  Weight: 86.5 kg

DRUGS (9)
  1. FLUOROURACIL [Suspect]
     Active Substance: FLUOROURACIL
     Indication: Oesophageal adenocarcinoma
     Dosage: 2600 MG/M2, IV, D1/D15/D29 AND D43 PRE-AND POST OP; LAST DOSE GIVEN BEFORE ONSET OF THE RAE WAS ON 0
     Route: 042
     Dates: start: 20230614
  2. DOCETAXEL [Suspect]
     Active Substance: DOCETAXEL
     Indication: Oesophageal adenocarcinoma
     Dosage: 50 MG/M2, IV, D1/D15/D29 AND D43 PRE-AND POST OP; LAST DOSE GIVEN BEFORE ONSET OF THE RAE WAS ON 01-
     Route: 042
     Dates: start: 20230614
  3. LEUCOVORIN [Suspect]
     Active Substance: LEUCOVORIN\LEUCOVORIN CALCIUM
     Indication: Oesophageal adenocarcinoma
     Dosage: 200 MG/M2, IV, D1/D15/D29 AND D43 PRE-AND POST OP; LAST DOSE GIVEN BEFORE ONSET OF THE RAE WAS ON 01
     Route: 042
     Dates: start: 20230614
  4. OXALIPLATIN [Suspect]
     Active Substance: OXALIPLATIN
     Indication: Oesophageal adenocarcinoma
     Dosage: 85 MG/M2, IV, D1/D15/D29 AND D43 PRE-AND POST OP; LAST DOSE GIVEN BEFORE ONSET OF THE RAE WAS ON 01-
     Route: 042
     Dates: start: 20230614
  5. ONTRUZANT [Suspect]
     Active Substance: TRASTUZUMAB-DTTB
     Dosage: AFTERWARDS 6 MG/KG IV D1 Q3W; LAST DOSE GIVEN BEFORE ONSET OF THE RAE WAS ON 01-AUG-2023;DAILY DOSE
     Route: 042
  6. ONTRUZANT [Suspect]
     Active Substance: TRASTUZUMAB-DTTB
     Dosage: D1: 8 MG/KG, LAST DOSE GIVEN BEFORE ONSET OF RAE: 01-AUG-2023, D22/D43 PRE-AND POST OP;
     Route: 042
  7. ONTRUZANT [Suspect]
     Active Substance: TRASTUZUMAB-DTTB
     Indication: Oesophageal adenocarcinoma
     Dosage: D1: 8 MG/KG, LAST DOSE GIVEN BEFORE ONSET OF RAE: 01-AUG-2023
     Route: 042
     Dates: start: 20230614
  8. PEMBROLIZUMAB [Suspect]
     Active Substance: PEMBROLIZUMAB
     Dosage: DOSE DESCRIPTION : AFTERWARDS D1 Q3W; LAST DOSE GIVEN BEFORE ONSET OF THE RAE  WAS ON 01-AUG-2023;DA
     Route: 042
  9. PEMBROLIZUMAB [Suspect]
     Active Substance: PEMBROLIZUMAB
     Indication: Oesophageal adenocarcinoma
     Dosage: 200 MG FLAT DOSE, IV, D1/D22/D43 PRE-AND POST OP. LAST DOSE GIVEN BEFORE ONSET OF RAE: 01-AUG-2023;
     Route: 042
     Dates: start: 20230614

REACTIONS (7)
  - Surgery [Unknown]
  - Gastrointestinal stenosis [Recovered/Resolved]
  - Staphylococcal infection [Recovered/Resolved]
  - Post procedural infection [Recovered/Resolved]
  - Weight decreased [Recovered/Resolved]
  - Pyrexia [Unknown]
  - Off label use [Unknown]

NARRATIVE: CASE EVENT DATE: 20230918
